FAERS Safety Report 10151845 (Version 1)
Quarter: 2014Q2

REPORT INFORMATION
  Report Type: Spontaneous
  Country: JP (occurrence: JP)
  Receive Date: 20140505
  Receipt Date: 20140505
  Transmission Date: 20141212
  Serious: Yes (Other)
  Sender: FDA-Public Use
  Company Number: JP-ACCORD-023428

PATIENT
  Age: 72 Year
  Sex: Female

DRUGS (3)
  1. METHOTREXATE [Suspect]
     Indication: RHEUMATOID ARTHRITIS
     Dosage: FOR 11 MONTH
  2. ETANERCEPT [Suspect]
     Indication: RHEUMATOID ARTHRITIS
     Dosage: FOR 8 MONTH
  3. PREDNISOLONE [Suspect]
     Indication: RHEUMATOID ARTHRITIS

REACTIONS (2)
  - Spinal compression fracture [Unknown]
  - Metastases to bone [Unknown]
